FAERS Safety Report 8520492-6 (Version None)
Quarter: 2012Q3

REPORT INFORMATION
  Report Type: 
  Country: None (occurrence: None)
  Receive Date: 20120719
  Receipt Date: 20120713
  Transmission Date: 20120928
  Serious: Yes (Hospitalization)
  Sender: FDA-Public Use
  Company Number: ZA-SANOFI-AVENTIS-2012SA049884

PATIENT
  Age: 68 Year
  Sex: Male

DRUGS (21)
  1. SOLOSTAR [Suspect]
     Dates: start: 20100501, end: 20120704
  2. LANTUS [Suspect]
     Indication: TYPE 2 DIABETES MELLITUS
     Route: 058
     Dates: start: 20100501, end: 20120704
  3. LANTUS [Suspect]
     Route: 058
     Dates: start: 20120704
  4. SOLOSTAR [Suspect]
     Indication: DEVICE THERAPY
     Dates: start: 20100501, end: 20120704
  5. SOLOSTAR [Suspect]
     Dates: start: 20120704
  6. APIDRA SOLOSTAR [Suspect]
     Indication: TYPE 2 DIABETES MELLITUS
     Route: 058
     Dates: start: 20100501, end: 20120704
  7. APIDRA SOLOSTAR [Suspect]
     Route: 058
     Dates: start: 20120704
  8. GLUCOPHAGE [Concomitant]
     Dosage: 1 GR BD DOSE:1 GRAIN(S)
     Route: 048
     Dates: start: 20120704
  9. LEXOMIL [Concomitant]
     Indication: DEPRESSION
     Route: 048
     Dates: start: 20120704
  10. PURICOS [Concomitant]
     Indication: GOUT
     Route: 048
     Dates: start: 20120704
  11. PURGOXIN [Concomitant]
     Route: 048
     Dates: start: 20120704
  12. CALCICARD [Concomitant]
     Indication: HYPERTENSION
     Dosage: 240 MG MANE
     Route: 048
     Dates: start: 20120704
  13. CONCOR [Concomitant]
     Indication: HYPERTENSION
     Route: 048
     Dates: start: 20120704
  14. ATORVASTATIN [Concomitant]
     Route: 048
     Dates: start: 20120704
  15. AMITRIPTYLINE HCL [Concomitant]
     Indication: DEPRESSION
     Route: 048
     Dates: start: 20120704
  16. ASPIRIN [Concomitant]
     Indication: PAIN
     Route: 048
     Dates: start: 20120704
  17. ALDACTONE [Concomitant]
     Indication: HYPERTENSION
     Route: 048
     Dates: start: 20120704
  18. PLAVIX [Concomitant]
     Route: 048
     Dates: start: 20120704
  19. HALCION [Concomitant]
     Indication: INSOMNIA
     Route: 048
     Dates: start: 20120704
  20. SOLOSTAR [Suspect]
     Dates: start: 20120704
  21. ISMO [Concomitant]
     Route: 048
     Dates: start: 20120704

REACTIONS (3)
  - CHEST PAIN [None]
  - DYSPNOEA [None]
  - MYOCARDIAL INFARCTION [None]
